FAERS Safety Report 7846632-X (Version None)
Quarter: 2011Q4

REPORT INFORMATION
  Report Type: 
  Country: None (occurrence: None)
  Receive Date: 20111025
  Receipt Date: 20111012
  Transmission Date: 20120403
  Serious: Yes (Other)
  Sender: FDA-Public Use
  Company Number: PHHY2011JP91223

PATIENT
  Age: 35 Year
  Sex: Male

DRUGS (2)
  1. CYCLOSPORINE [Suspect]
     Dosage: UNK UKN, UNK
  2. INFLIXIMAB [Suspect]
     Dosage: UNK UKN, UNK

REACTIONS (4)
  - LUNG INFILTRATION [None]
  - CELL MARKER INCREASED [None]
  - HYPERTENSION [None]
  - CHEST PAIN [None]
